FAERS Safety Report 14240365 (Version 1)
Quarter: 2017Q4

REPORT INFORMATION
  Report Type: Spontaneous
  Country: US (occurrence: US)
  Receive Date: 20171129
  Receipt Date: 20171129
  Transmission Date: 20180321
  Serious: Yes (Death, Life-Threatening, Hospitalization)
  Sender: FDA-Public Use
  Company Number: None

PATIENT
  Age: 79 Year
  Sex: Male

DRUGS (1)
  1. XARELTO [Suspect]
     Active Substance: RIVAROXABAN
     Indication: ATRIAL FIBRILLATION
     Route: 048
     Dates: end: 20171121

REACTIONS (4)
  - Cerebral haemorrhage [None]
  - Respiratory disorder [None]
  - Subdural haemorrhage [None]
  - Neurological decompensation [None]

NARRATIVE: CASE EVENT DATE: 20171121
